FAERS Safety Report 23198657 (Version 1)
Quarter: 2023Q4

REPORT INFORMATION
  Report Type: Spontaneous
  Country: US (occurrence: None)
  Receive Date: 20231117
  Receipt Date: 20231117
  Transmission Date: 20240110
  Serious: No
  Sender: FDA-Public Use
  Company Number: None

PATIENT
  Sex: Female

DRUGS (1)
  1. TREMFYA [Suspect]
     Active Substance: GUSELKUMAB
     Indication: Psoriasis
     Dosage: OTHER FREQUENCY : Q 8WEEKS;?OTHER ROUTE : UNDER THE SKIN;?
     Route: 050
     Dates: start: 202306

REACTIONS (4)
  - Drug ineffective [None]
  - Oedema peripheral [None]
  - Arthritis [None]
  - Arthralgia [None]
